FAERS Safety Report 13575821 (Version 1)
Quarter: 2017Q2

REPORT INFORMATION
  Report Type: Spontaneous
  Country: US (occurrence: US)
  Receive Date: 20170524
  Receipt Date: 20170524
  Transmission Date: 20170830
  Serious: No
  Sender: FDA-Public Use
  Company Number: US-ALVOGEN-2017-ALVOGEN-091841

PATIENT
  Age: 60 Year
  Sex: Female
  Weight: 69.6 kg

DRUGS (1)
  1. EXEMESTANE. [Suspect]
     Active Substance: EXEMESTANE
     Indication: BREAST CANCER METASTATIC
     Dates: start: 20160517, end: 201701

REACTIONS (3)
  - Disease progression [Unknown]
  - Hilar lymphadenopathy [Unknown]
  - Metastases to lung [Unknown]

NARRATIVE: CASE EVENT DATE: 20170109
